FAERS Safety Report 6481452-2 (Version None)
Quarter: 2009Q4

REPORT INFORMATION
  Report Type: 
  Country: None (occurrence: None)
  Receive Date: 20091208
  Receipt Date: 20091208
  Transmission Date: 20100525
  Serious: Yes (Other)
  Sender: FDA-Public Use
  Company Number: US-PFIZER INC-2009285245

PATIENT
  Age: 39 Year
  Sex: Male
  Weight: 77.098 kg

DRUGS (2)
  1. VARENICLINE TARTRATE [Suspect]
     Indication: SMOKING CESSATION THERAPY
     Dosage: 0.5-1 MG TITRATED, DAILY
     Route: 048
     Dates: start: 20090317, end: 20090406
  2. GEMFIBROZIL [Suspect]
     Indication: HYPERLIPIDAEMIA
     Dosage: 600 MG, 2X/DAY
     Route: 048

REACTIONS (4)
  - ABNORMAL DREAMS [None]
  - FORMICATION [None]
  - HOMICIDAL IDEATION [None]
  - SUICIDAL IDEATION [None]
